FAERS Safety Report 5126094-6 (Version None)
Quarter: 2006Q4

REPORT INFORMATION
  Report Type: 
  Country: None (occurrence: None)
  Receive Date: 20061012
  Receipt Date: 20061003
  Transmission Date: 20070319
  Serious: Yes (Death)
  Sender: FDA-Public Use
  Company Number: JP-JNJFOC-20060901977

PATIENT
  Sex: Male

DRUGS (4)
  1. RISPERDAL [Suspect]
     Indication: SCHIZOPHRENIA
     Route: 048
  2. AKINETON [Concomitant]
     Indication: SCHIZOPHRENIA
  3. LEVOMEPROMAZINE [Concomitant]
  4. NITRAZEPAM [Concomitant]

REACTIONS (6)
  - CEREBRAL CIRCULATORY FAILURE [None]
  - CEREBRAL INFARCTION [None]
  - DEHYDRATION [None]
  - HYPOGLYCAEMIA [None]
  - INAPPROPRIATE ANTIDIURETIC HORMONE SECRETION [None]
  - POLYURIA [None]
